FAERS Safety Report 24248279 (Version 1)
Quarter: 2024Q3

REPORT INFORMATION
  Report Type: Spontaneous
  Country: US (occurrence: US)
  Receive Date: 20240826
  Receipt Date: 20240826
  Transmission Date: 20241017
  Serious: Yes (Other)
  Sender: BRISTOL MYERS SQUIBB
  Company Number: US-BRISTOL-MYERS SQUIBB COMPANY-2024-130984

PATIENT
  Age: 78 Year
  Sex: Female
  Weight: 58.06 kg

DRUGS (1)
  1. REVLIMID [Suspect]
     Active Substance: LENALIDOMIDE
     Indication: Plasma cell myeloma
     Dosage: TAKE ONE CAPSULE EVERY OTHER DAY FOR ?14 DAYS ON THEN 7 DAYS OFF
     Route: 048

REACTIONS (2)
  - Neutropenia [Recovering/Resolving]
  - Fatigue [Recovering/Resolving]
